FAERS Safety Report 11898083 (Version 3)
Quarter: 2016Q1

REPORT INFORMATION
  Report Type: Report from Study
  Country: US (occurrence: US)
  Receive Date: 20160108
  Receipt Date: 20160301
  Transmission Date: 20160526
  Serious: No
  Sender: FDA-Public Use
  Company Number: US-AMGEN-USASL2016000617

PATIENT
  Age: 68 Year
  Sex: Female

DRUGS (1)
  1. ENBREL [Suspect]
     Active Substance: ETANERCEPT
     Indication: PSORIATIC ARTHROPATHY
     Dosage: 50 MG, QWK, EVERY FRIDAY
     Route: 065
     Dates: start: 20140926

REACTIONS (7)
  - Injection site pain [Unknown]
  - Injection site swelling [Unknown]
  - Device issue [Unknown]
  - Renal vessel disorder [Unknown]
  - Injection site haemorrhage [Unknown]
  - Injection site extravasation [Unknown]
  - Wrong technique in product usage process [Unknown]
